FAERS Safety Report 20393448 (Version 2)
Quarter: 2022Q2

REPORT INFORMATION
  Report Type: Spontaneous
  Country: DE (occurrence: DE)
  Receive Date: 20220128
  Receipt Date: 20220404
  Transmission Date: 20220720
  Serious: Yes (Hospitalization, Other)
  Sender: FDA-Public Use
  Company Number: DE-Phoenix Labs Unlimited Company-DE-P18030-22-00003

PATIENT
  Age: 84 Year
  Sex: Female

DRUGS (8)
  1. LETROZOLE [Suspect]
     Active Substance: LETROZOLE
     Indication: Breast cancer metastatic
     Dosage: 2.5 MILLIGRAM, QD
     Route: 048
     Dates: start: 20200420
  2. LETROZOLE [Suspect]
     Active Substance: LETROZOLE
     Dosage: QD
     Route: 048
     Dates: start: 20200415, end: 20210618
  3. KISQALI [Suspect]
     Active Substance: RIBOCICLIB
     Indication: Breast cancer metastatic
     Dosage: 600 MILLIGRAM, CYCLE, QD SCHEMA 21 DAYS INTAKE, 7 DAYS PAUSE
     Route: 048
     Dates: start: 20200420, end: 20210303
  4. KISQALI [Suspect]
     Active Substance: RIBOCICLIB
     Dosage: QD SCHEMA 21 DAYS INTAKE, 7 DAYS PAUSE
     Route: 048
     Dates: start: 20210401, end: 20210618
  5. KISQALI [Suspect]
     Active Substance: RIBOCICLIB
     Dosage: QD SCHEMA 21 DAYS INTAKE, 7 DAYS PAUSE
     Route: 048
     Dates: start: 20200415, end: 20210618
  6. ZOLEDRONIC ACID [Suspect]
     Active Substance: ZOLEDRONIC ACID
     Indication: Bone disorder
     Dosage: 4 MILLIGRAM, 4 MG, Q4W
     Route: 042
     Dates: start: 20120328
  7. ZOMETA [Suspect]
     Active Substance: ZOLEDRONIC ACID
     Indication: Bone disorder
     Dosage: 4 MG, Q4W
     Route: 042
     Dates: start: 20120328, end: 20210929
  8. TORSEMIDE [Concomitant]
     Active Substance: TORSEMIDE
     Indication: Product used for unknown indication
     Dosage: UNK

REACTIONS (10)
  - Blood creatinine increased [Not Recovered/Not Resolved]
  - Anaemia [Recovering/Resolving]
  - End stage renal disease [Recovering/Resolving]
  - Lower gastrointestinal haemorrhage [Recovered/Resolved]
  - Atrial fibrillation [Not Recovered/Not Resolved]
  - Hepatic cirrhosis [Not Recovered/Not Resolved]
  - Metabolic acidosis [Recovering/Resolving]
  - Decreased appetite [Unknown]
  - Urinary tract infection [Recovered/Resolved]
  - Varices oesophageal [Unknown]

NARRATIVE: CASE EVENT DATE: 20210512
